FAERS Safety Report 12320227 (Version 1)
Quarter: 2016Q2

REPORT INFORMATION
  Report Type: Report from Study
  Country: IT (occurrence: IT)
  Receive Date: 20160429
  Receipt Date: 20160429
  Transmission Date: 20160815
  Serious: Yes (Other)
  Sender: FDA-Public Use
  Company Number: IT-MYLANLABS-2016M1017335

PATIENT
  Sex: Female

DRUGS (3)
  1. NICARDIPINE [Suspect]
     Active Substance: NICARDIPINE
     Indication: OFF LABEL USE
     Dosage: 85 MG/DAY
     Route: 042
  2. BETAMETHASONE. [Suspect]
     Active Substance: BETAMETHASONE
     Indication: PRODUCT USED FOR UNKNOWN INDICATION
     Route: 065
  3. NICARDIPINE [Suspect]
     Active Substance: NICARDIPINE
     Indication: TOCOLYSIS

REACTIONS (4)
  - Premature labour [Unknown]
  - Maternal exposure during pregnancy [Unknown]
  - Acute pulmonary oedema [Unknown]
  - Off label use [Unknown]
